FAERS Safety Report 7204874-0 (Version None)
Quarter: 2010Q4

REPORT INFORMATION
  Report Type: 
  Country: None (occurrence: None)
  Receive Date: 20101230
  Receipt Date: 20101221
  Transmission Date: 20110411
  Serious: Yes (Other)
  Sender: FDA-Public Use
  Company Number: DE-JNJFOC-20101207796

PATIENT
  Age: 33 Year
  Sex: Female
  Weight: 85 kg

DRUGS (4)
  1. REMICADE [Suspect]
     Indication: POLYARTHRITIS
     Route: 042
  2. VENOFER [Concomitant]
     Indication: IRON DEFICIENCY ANAEMIA
  3. VENOFER [Concomitant]
  4. VENOFER [Concomitant]

REACTIONS (1)
  - DRUG EXPOSURE DURING PREGNANCY [None]
